FAERS Safety Report 22658591 (Version 7)
Quarter: 2024Q1

REPORT INFORMATION
  Report Type: Other
  Country: FR (occurrence: FR)
  Receive Date: 20230630
  Receipt Date: 20240129
  Transmission Date: 20240410
  Serious: Yes (Life-Threatening, Hospitalization, Other)
  Sender: FDA-Public Use
  Company Number: None

PATIENT
  Age: 45 Year
  Sex: Female
  Weight: 119 kg

DRUGS (77)
  1. VANCOMYCIN [Suspect]
     Active Substance: VANCOMYCIN
     Indication: Meningitis meningococcal
     Dosage: UNK, BLADDER IRRIGATION
     Route: 042
     Dates: start: 20181127, end: 20181228
  2. VANCOMYCIN [Suspect]
     Active Substance: VANCOMYCIN
     Indication: Enterobacter infection
     Dosage: UNK
     Route: 042
     Dates: start: 20181126, end: 20181228
  3. VANCOMYCIN [Suspect]
     Active Substance: VANCOMYCIN
     Indication: Pathogen resistance
     Dosage: UNK, TREATMENT STARTS ON 26 NOVEMBER AND ENDS ON 29 DECEMBER.
     Route: 065
  4. VANCOMYCIN [Suspect]
     Active Substance: VANCOMYCIN
     Indication: Device related infection
     Dosage: DOSE DESCRIPTION : UNK
     Route: 042
     Dates: start: 20181228
  5. VANCOMYCIN [Suspect]
     Active Substance: VANCOMYCIN
     Indication: Meningitis
  6. VANCOMYCIN [Suspect]
     Active Substance: VANCOMYCIN
     Indication: Osteitis
  7. VANCOMYCIN [Suspect]
     Active Substance: VANCOMYCIN
     Indication: Pathogen resistance
  8. MEROPENEM [Suspect]
     Active Substance: MEROPENEM
     Indication: Infection
     Dosage: 2 GRAM, BID, BLADDER IRRIGATION
     Route: 042
     Dates: start: 20181229, end: 20190106
  9. MEROPENEM [Suspect]
     Active Substance: MEROPENEM
     Indication: Meningitis meningococcal
     Dosage: 2 GRAM, BLADDER IRRIGATION
     Route: 065
  10. MEROPENEM [Suspect]
     Active Substance: MEROPENEM
     Indication: Pathogen resistance
     Dosage: 2 GRAM, Q8H, BLADDER IRRIGATION
     Route: 042
     Dates: start: 20181126, end: 20181228
  11. MEROPENEM [Suspect]
     Active Substance: MEROPENEM
     Indication: Enterobacter infection
     Dosage: 4 GRAM, QD, 29TH DEC TO 5TH JAN
     Route: 065
  12. MEROPENEM [Suspect]
     Active Substance: MEROPENEM
     Indication: Device related infection
     Dosage: 6 GRAM, QD, 26TH NOV TO 28TH DEC
     Route: 065
  13. MEROPENEM [Suspect]
     Active Substance: MEROPENEM
     Indication: Osteitis
     Dosage: DOSE DESCRIPTION : 2 G
     Route: 065
  14. MEROPENEM [Suspect]
     Active Substance: MEROPENEM
     Indication: Pathogen resistance
     Dosage: UNK, STARTED ON 26 NOVEMBER.
     Route: 065
  15. MEROPENEM [Suspect]
     Active Substance: MEROPENEM
     Dosage: 2 GRAM, Q8H, BLADDER IRRIGATION
     Route: 042
     Dates: start: 20181126, end: 20181228
  16. MEROPENEM [Suspect]
     Active Substance: MEROPENEM
     Dosage: 2 G, QD (1/DAY)
     Route: 065
     Dates: start: 20190125, end: 20190125
  17. MEROPENEM [Suspect]
     Active Substance: MEROPENEM
     Dosage: 2 G, TID (3/DAY) EVERY 8 HOURS
     Route: 042
     Dates: start: 20181126, end: 20181228
  18. MEROPENEM [Suspect]
     Active Substance: MEROPENEM
     Dosage: 2 G, BID (2/DAY) EVERY 12 HOURS
     Route: 042
     Dates: start: 20181229, end: 20190105
  19. MEROPENEM [Suspect]
     Active Substance: MEROPENEM
     Dosage: DOSE DESCRIPTION : 2 G, BID
     Route: 042
     Dates: start: 20190105
  20. MEROPENEM [Suspect]
     Active Substance: MEROPENEM
     Dosage: 2 GRAM, Q8H
     Route: 042
     Dates: start: 20181228
  21. FILGRASTIM [Suspect]
     Active Substance: FILGRASTIM
     Indication: Neutropenia
     Dosage: 48 MUI FOR 5 DAYS
     Route: 065
  22. PANTOPRAZOLE [Suspect]
     Active Substance: PANTOPRAZOLE
     Indication: Prophylaxis against gastrointestinal ulcer
     Dosage: 20 MG PER DAY
     Dates: start: 20181116, end: 20181230
  23. PANTOPRAZOLE [Suspect]
     Active Substance: PANTOPRAZOLE
     Indication: Stress ulcer
     Dosage: 40 MG, QD
     Route: 048
     Dates: start: 20181121, end: 20190101
  24. PANTOPRAZOLE [Suspect]
     Active Substance: PANTOPRAZOLE
     Dosage: 20 MG PER DAY
     Dates: start: 20181020, end: 20181113
  25. PANTOPRAZOLE [Suspect]
     Active Substance: PANTOPRAZOLE
     Dosage: UNK
     Route: 065
  26. PANTOPRAZOLE [Suspect]
     Active Substance: PANTOPRAZOLE
     Dosage: 20 MILLIGRAM, QD
     Route: 048
     Dates: start: 20180120, end: 20181113
  27. FOSFOMYCIN [Suspect]
     Active Substance: FOSFOMYCIN
     Indication: Infection
     Dosage: 4 GRAM, Q6H, (4 G, QID)
     Route: 042
     Dates: start: 20190102, end: 20190107
  28. FOSFOMYCIN [Suspect]
     Active Substance: FOSFOMYCIN
     Indication: Meningitis meningococcal
     Dosage: 4 GRAM, Q6H (4 G, QID)
     Route: 042
     Dates: start: 20181229, end: 20190101
  29. FOSFOMYCIN [Suspect]
     Active Substance: FOSFOMYCIN
     Indication: Enterobacter infection
     Dosage: 4 GRAM, Q6H (4 G, QID)
     Route: 042
     Dates: start: 20190108, end: 20190108
  30. FOSFOMYCIN [Suspect]
     Active Substance: FOSFOMYCIN
     Indication: Osteitis
     Dosage: 16 GRAM, QD
     Route: 042
     Dates: start: 20181229, end: 20190101
  31. FOSFOMYCIN [Suspect]
     Active Substance: FOSFOMYCIN
     Indication: Infection
     Dosage: UNK, INITIAL DOSE NOT STATED
     Route: 065
  32. FOSFOMYCIN [Suspect]
     Active Substance: FOSFOMYCIN
     Dosage: DOSE DESCRIPTION : 4 G, QID
     Route: 042
     Dates: end: 20190101
  33. FOSFOMYCIN [Suspect]
     Active Substance: FOSFOMYCIN
     Dosage: 4 G, 2X/DAY
     Route: 042
     Dates: start: 20190102, end: 20190107
  34. FOSFOMYCIN [Suspect]
     Active Substance: FOSFOMYCIN
     Dosage: 4 G, 3X/DAY
     Route: 042
     Dates: start: 20190108, end: 20190108
  35. FOSFOMYCIN [Suspect]
     Active Substance: FOSFOMYCIN
     Dosage: 4 G, 4X/DAY
     Route: 042
     Dates: start: 20190108, end: 20190108
  36. FOSFOMYCIN [Suspect]
     Active Substance: FOSFOMYCIN
     Dosage: 8 GRAM, QD (4 G, 2X/DAY)
     Route: 042
     Dates: start: 20190102, end: 20190107
  37. FOSFOMYCIN [Suspect]
     Active Substance: FOSFOMYCIN
     Dosage: DOSE DESCRIPTION : 4 G, QID
     Route: 042
     Dates: end: 20190108
  38. FOSFOMYCIN [Suspect]
     Active Substance: FOSFOMYCIN
     Dosage: DOSE DESCRIPTION : 4 G, QID
     Route: 042
     Dates: end: 20190107
  39. FERROUS SULFATE [Suspect]
     Active Substance: FERROUS SULFATE
     Indication: Iron deficiency
     Dosage: 80 MG, 2X/DAY
     Route: 048
     Dates: start: 20181121, end: 20190102
  40. FERROUS SULFATE [Suspect]
     Active Substance: FERROUS SULFATE
     Dosage: DOSE DESCRIPTION : 80 MG, BID
     Route: 048
     Dates: start: 20181121, end: 20190102
  41. FERROUS SULFATE [Suspect]
     Active Substance: FERROUS SULFATE
     Indication: Product used for unknown indication
     Dosage: UNK
     Route: 048
  42. AZACTAM [Suspect]
     Active Substance: AZTREONAM
     Indication: Product used for unknown indication
     Dosage: 2 G, TID (3/DAY) EVERY 8 HOURS
     Route: 065
     Dates: start: 20190108, end: 20190115
  43. FOSFOMYCIN [Suspect]
     Active Substance: FOSFOMYCIN
     Indication: Osteitis
     Dosage: 4 G, BID, EVERY 12 HOURS
     Route: 042
     Dates: start: 20190102, end: 20190107
  44. FOSFOMYCIN [Suspect]
     Active Substance: FOSFOMYCIN
     Indication: Meningitis
     Dosage: 4 G, TID, EVERY 6 HOURS
     Route: 042
     Dates: start: 20190108, end: 20190108
  45. FOSFOMYCIN [Suspect]
     Active Substance: FOSFOMYCIN
     Dosage: 4 G, QID
     Route: 042
     Dates: start: 20190125, end: 20190131
  46. FOSFOMYCIN [Suspect]
     Active Substance: FOSFOMYCIN
     Dosage: 4 G, QID, EVERY 6 HOURS
     Route: 042
     Dates: start: 20181229, end: 20190101
  47. COLISTIN [Suspect]
     Active Substance: COLISTIN
     Indication: Product used for unknown indication
     Dosage: UNK
     Route: 065
     Dates: start: 20190108, end: 20190123
  48. CASPOFUNGIN [Suspect]
     Active Substance: CASPOFUNGIN
     Indication: Product used for unknown indication
     Dosage: UNK
     Route: 065
     Dates: start: 20190108, end: 20190118
  49. PANTOPRAZOLE SODIUM [Suspect]
     Active Substance: PANTOPRAZOLE SODIUM
     Indication: Prophylaxis against gastrointestinal ulcer
     Dosage: DOSE DESCRIPTION : 20 MG
     Route: 048
     Dates: start: 20181020, end: 20181113
  50. PANTOPRAZOLE SODIUM [Suspect]
     Active Substance: PANTOPRAZOLE SODIUM
     Dosage: DOSE DESCRIPTION : 40 MG, QD
     Route: 048
     Dates: start: 20181121, end: 20190101
  51. PANTOPRAZOLE SODIUM [Suspect]
     Active Substance: PANTOPRAZOLE SODIUM
     Dosage: DOSE DESCRIPTION : 20 MG
     Route: 048
     Dates: start: 20181116
  52. LANSOPRAZOLE [Suspect]
     Active Substance: LANSOPRAZOLE
     Indication: Product used for unknown indication
     Dosage: UNK
     Route: 065
  53. AZTREONAM [Suspect]
     Active Substance: AZTREONAM
     Indication: Evidence based treatment
     Dosage: UNK
     Route: 065
  54. COLISTIN [Concomitant]
     Active Substance: COLISTIN
     Indication: Product used for unknown indication
     Dosage: UNK
     Route: 065
  55. COLISTIN [Concomitant]
     Active Substance: COLISTIN
     Dosage: DOSE DESCRIPTION : UNK
     Route: 065
  56. AZTREONAM [Concomitant]
     Active Substance: AZTREONAM
     Indication: Product used for unknown indication
     Dosage: 2 G, 3X/DAY
     Route: 065
     Dates: start: 20190108
  57. AZTREONAM [Concomitant]
     Active Substance: AZTREONAM
     Dosage: UNK
     Route: 065
  58. AZTREONAM [Concomitant]
     Active Substance: AZTREONAM
     Dosage: DOSE DESCRIPTION : UNK
     Route: 065
     Dates: start: 20190108
  59. BISOPROLOL [Concomitant]
     Active Substance: BISOPROLOL\BISOPROLOL FUMARATE
     Indication: Product used for unknown indication
     Dosage: UNK
     Route: 065
  60. BISOPROLOL [Concomitant]
     Active Substance: BISOPROLOL\BISOPROLOL FUMARATE
     Dosage: UNK
     Route: 048
  61. POTASSIUM [Concomitant]
     Active Substance: POTASSIUM
     Indication: Product used for unknown indication
     Dosage: UNK
     Route: 048
  62. POTASSIUM [Concomitant]
     Active Substance: POTASSIUM
     Dosage: UNK
     Route: 065
  63. POTASSIUM [Concomitant]
     Active Substance: POTASSIUM
     Route: 048
  64. GADOTERATE MEGLUMINE [Concomitant]
     Active Substance: GADOTERATE MEGLUMINE
     Indication: Product used for unknown indication
     Dosage: UNK
     Route: 065
  65. LEVETIRACETAM [Concomitant]
     Active Substance: LEVETIRACETAM
     Indication: Product used for unknown indication
     Dosage: UNK
     Route: 065
  66. ENOXAPARIN [Concomitant]
     Active Substance: ENOXAPARIN
     Indication: Product used for unknown indication
     Dosage: UNK
     Route: 065
  67. CASPOFUNGIN [Concomitant]
     Active Substance: CASPOFUNGIN
     Indication: Evidence based treatment
     Dosage: UNK
     Route: 065
  68. LINEZOLID [Concomitant]
     Active Substance: LINEZOLID
     Indication: Product used for unknown indication
     Dosage: UNK
     Route: 065
  69. LANSOPRAZOLE [Concomitant]
     Active Substance: LANSOPRAZOLE
     Indication: Product used for unknown indication
     Dosage: 15 MG, 1X/DAY
     Route: 065
     Dates: start: 20190101
  70. SODIUM FEREDETATE [Concomitant]
     Active Substance: SODIUM FEREDETATE
     Indication: Product used for unknown indication
     Dosage: 15 ML, 2X/DAY (30 ML QD)
     Route: 065
  71. FERROUS FUMARATE [Concomitant]
     Active Substance: FERROUS FUMARATE
     Indication: Product used for unknown indication
     Dosage: UNK
     Route: 065
     Dates: start: 20190103
  72. CITALOPRAM [Concomitant]
     Active Substance: CITALOPRAM HYDROBROMIDE
     Indication: Product used for unknown indication
     Dosage: 20 MILLIGRAM
     Route: 065
  73. CITALOPRAM [Concomitant]
     Active Substance: CITALOPRAM HYDROBROMIDE
     Dosage: 20 MG
     Dates: start: 20190102, end: 20190131
  74. VANCOMYCIN [Concomitant]
     Active Substance: VANCOMYCIN
     Indication: Pathogen resistance
     Dosage: DOSE DESCRIPTION : UNK
     Route: 042
     Dates: end: 20181228
  75. VANCOMYCIN [Concomitant]
     Active Substance: VANCOMYCIN
     Indication: Meningitis meningococcal
  76. VANCOMYCIN [Concomitant]
     Active Substance: VANCOMYCIN
     Indication: Pathogen resistance
  77. SODIUM FEREDETATE [Concomitant]
     Active Substance: SODIUM FEREDETATE
     Indication: Product used for unknown indication
     Dosage: UNK
     Route: 065

REACTIONS (36)
  - Blood albumin decreased [Unknown]
  - Oedema [None]
  - Oedema peripheral [None]
  - Blood urea increased [Unknown]
  - Blood creatinine increased [Unknown]
  - Immunoglobulins decreased [Unknown]
  - Vancomycin infusion reaction [Unknown]
  - Hepatic cytolysis [Recovered/Resolved]
  - Erythema [None]
  - Erythema [None]
  - Agranulocytosis [Recovered/Resolved]
  - Skin exfoliation [None]
  - Rash [None]
  - Drug reaction with eosinophilia and systemic symptoms [None]
  - Pruritus [None]
  - Rash [None]
  - Rash [None]
  - Pruritus [None]
  - Type IV hypersensitivity reaction [None]
  - Neutrophil count decreased [Unknown]
  - Renal failure [None]
  - Drug reaction with eosinophilia and systemic symptoms [None]
  - Drug ineffective [Unknown]
  - Neutropenia [Recovered/Resolved]
  - Impaired healing [Unknown]
  - Eosinophilia [None]
  - Drug reaction with eosinophilia and systemic symptoms [Unknown]
  - Contraindicated product administered [Unknown]
  - Agranulocytosis [Unknown]
  - Candida test positive [Unknown]
  - Gram stain positive [Unknown]
  - Lymphopenia [Unknown]
  - Pseudomonas test positive [Unknown]
  - Drug ineffective [Unknown]
  - Off label use [Unknown]
  - Off label use [Unknown]

NARRATIVE: CASE EVENT DATE: 20181121
